FAERS Safety Report 17006556 (Version 1)
Quarter: 2019Q4

REPORT INFORMATION
  Report Type: Spontaneous
  Country: US (occurrence: US)
  Receive Date: 20191107
  Receipt Date: 20191107
  Transmission Date: 20200122
  Serious: Yes (Other)
  Sender: FDA-Public Use
  Company Number: US-TEVA-2019-US-1133201

PATIENT

DRUGS (2)
  1. CARTIA XT [Suspect]
     Active Substance: DILTIAZEM HYDROCHLORIDE
     Dosage: ADMINISTERED THE DRUG EACH AM.
     Route: 065
  2. TIKOSYN [Suspect]
     Active Substance: DOFETILIDE
     Dosage: 750 MICROGRAM DAILY; AT 08:00 AM AND 08:00 PM
     Route: 065

REACTIONS (1)
  - Atrial fibrillation [Unknown]

NARRATIVE: CASE EVENT DATE: 20190911
